FAERS Safety Report 5152141-1 (Version None)
Quarter: 2006Q4

REPORT INFORMATION
  Report Type: 
  Country: None (occurrence: None)
  Receive Date: 20061109
  Receipt Date: 20061027
  Transmission Date: 20070319
  Serious: Yes (Other)
  Sender: FDA-Public Use
  Company Number: 2006133635

PATIENT
  Sex: Female

DRUGS (2)
  1. FLAGYL [Suspect]
     Indication: VAGINAL INFECTION
     Dosage: 500 MG (500 MG, 1 IN 1 D)
  2. DIFLUCAN [Suspect]
     Indication: FUNGAL INFECTION

REACTIONS (9)
  - DIARRHOEA [None]
  - DISEASE RECURRENCE [None]
  - DYSARTHRIA [None]
  - GENITAL PRURITUS FEMALE [None]
  - LOSS OF CONSCIOUSNESS [None]
  - POISONING [None]
  - VAGINAL DISCHARGE [None]
  - VAGINAL INFECTION [None]
  - WEIGHT INCREASED [None]
